FAERS Safety Report 9619570 (Version 3)
Quarter: 2013Q4

REPORT INFORMATION
  Report Type: Spontaneous
  Country: US (occurrence: US)
  Receive Date: 20131014
  Receipt Date: 20131021
  Transmission Date: 20140711
  Serious: Yes (Hospitalization, Other)
  Sender: FDA-Public Use
  Company Number: US-GILEAD-2013-0085374

PATIENT
  Sex: Female

DRUGS (2)
  1. LETAIRIS [Suspect]
     Indication: PORTOPULMONARY HYPERTENSION
     Dosage: 10 MG, QD
     Route: 048
     Dates: start: 20130705
  2. SILDENAFIL CITRATE [Concomitant]

REACTIONS (3)
  - Pulmonary oedema [Unknown]
  - Pharyngeal abscess [Unknown]
  - Upper respiratory tract infection [Unknown]
